FAERS Safety Report 19087581 (Version 1)
Quarter: 2021Q2

REPORT INFORMATION
  Report Type: Other
  Country: US (occurrence: US)
  Receive Date: 20210402
  Receipt Date: 20210402
  Transmission Date: 20210717
  Serious: Yes (Other)
  Sender: FDA-Public Use
  Company Number: US-INTERCEPT-PM2020002262

PATIENT
  Sex: Female

DRUGS (6)
  1. ASPIRIN EC [Concomitant]
     Active Substance: ASPIRIN
  2. MULTIVITAMINS                      /00116001/ [Concomitant]
     Active Substance: VITAMINS
  3. REPATHA [Concomitant]
     Active Substance: EVOLOCUMAB
  4. URSODIOL. [Concomitant]
     Active Substance: URSODIOL
  5. OCALIVA [Suspect]
     Active Substance: OBETICHOLIC ACID
     Dosage: 5 MILLIGRAM, QD
     Route: 048
     Dates: start: 201901
  6. OCALIVA [Suspect]
     Active Substance: OBETICHOLIC ACID
     Indication: PRIMARY BILIARY CHOLANGITIS
     Dosage: 5 MILLIGRAM, QD
     Route: 048
     Dates: start: 20180802

REACTIONS (5)
  - Rash [Unknown]
  - Therapy interrupted [Unknown]
  - Malaise [Unknown]
  - Dementia [Unknown]
  - Illness [Unknown]
